FAERS Safety Report 9755127 (Version 1)
Quarter: 2013Q4

REPORT INFORMATION
  Report Type: Spontaneous
  Country: US (occurrence: US)
  Receive Date: 20131213
  Receipt Date: 20131213
  Transmission Date: 20140711
  Serious: No
  Sender: FDA-Public Use
  Company Number: US-GLAXOSMITHKLINE-A1012160A

PATIENT
  Age: 46 Year
  Sex: Female

DRUGS (2)
  1. NICODERM CQ 21MG [Suspect]
     Indication: PRODUCT USED FOR UNKNOWN INDICATION
     Route: 062
     Dates: start: 2012
  2. ZOFRAN [Suspect]
     Indication: VOMITING
     Route: 065

REACTIONS (4)
  - Vomiting [Recovered/Resolved]
  - Balance disorder [Recovered/Resolved]
  - Gait disturbance [Recovered/Resolved]
  - Drug ineffective [Unknown]
